FAERS Safety Report 6242021-2 (Version None)
Quarter: 2009Q2

REPORT INFORMATION
  Report Type: 
  Country: None (occurrence: None)
  Receive Date: 20090622
  Receipt Date: 20090604
  Transmission Date: 20091009
  Serious: Yes (Hospitalization)
  Sender: FDA-Public Use
  Company Number: 000935

PATIENT
  Age: 65 Year
  Sex: Male

DRUGS (5)
  1. LACOSAMIDE [Suspect]
     Indication: DIABETIC NEUROPATHY
     Dosage: 200 MG BID, ORAL (UNBLINDED NO)
     Route: 048
     Dates: start: 20041125
  2. AMITRIPTYLINE HYDROCHLORIDE [Concomitant]
  3. SYMBICORT [Concomitant]
  4. ATACAND [Concomitant]
  5. CODEINE SUL TAB [Concomitant]

REACTIONS (4)
  - ANAEMIA [None]
  - FATIGUE [None]
  - HYPONATRAEMIA [None]
  - PULMONARY MYCOSIS [None]
